FAERS Safety Report 4513257-3 (Version None)
Quarter: 2004Q4

REPORT INFORMATION
  Report Type: 
  Country: None (occurrence: None)
  Receive Date: 20041130
  Receipt Date: 20040729
  Transmission Date: 20050328
  Serious: Yes (Life-Threatening, Hospitalization)
  Sender: FDA-Public Use
  Company Number: US-ROCHE-376381

PATIENT
  Age: 53 Year
  Sex: Male
  Weight: 98.4 kg

DRUGS (12)
  1. PEGASYS [Suspect]
     Indication: HEPATITIS C
     Route: 058
     Dates: start: 20031019, end: 20040504
  2. RIBAVIRIN [Suspect]
     Indication: HEPATITIS C
     Route: 048
     Dates: start: 20031025, end: 20040504
  3. FELODIPINE [Concomitant]
     Dosage: REPORTED AS FELODIPINE SA.
  4. NIACIN [Concomitant]
     Dosage: FREQUENCY REPORTED AS ONE EVERY NIGHT REPORTED AS NIACIN SA.
     Route: 048
     Dates: start: 20031014
  5. TRAZODONE HCL [Concomitant]
     Indication: POST-TRAUMATIC STRESS DISORDER
     Dosage: REPORTED SECONDARY INDICATION: SLEEP DOSE FREQUENCY REPORTED AS 2 PER NIGHT
     Route: 048
     Dates: start: 19980922
  6. SERTRALINE HCL [Concomitant]
     Indication: POST-TRAUMATIC STRESS DISORDER
     Dosage: EVERY MORNING
     Route: 048
     Dates: start: 20011212
  7. QUETIAPINE [Concomitant]
     Indication: POST-TRAUMATIC STRESS DISORDER
     Dosage: TAKEN AT NIGHT
     Route: 048
     Dates: start: 20011212
  8. COLESTIPOL [Concomitant]
     Route: 048
     Dates: start: 20020207
  9. NAPROXEN [Concomitant]
     Indication: PAIN
     Dosage: REPORTED AS PRN (WHEN REQUIRED)
     Route: 048
     Dates: start: 20010410, end: 20040329
  10. OMEPRAZOLE [Concomitant]
     Dosage: EVERY MORNING REPORTED AS SUSTAINED ACTION
     Route: 048
     Dates: start: 20040316
  11. DOCUSATE [Concomitant]
     Indication: CONSTIPATION
     Route: 048
     Dates: start: 20030801
  12. THIAMINE HCL [Concomitant]
     Dosage: DAILY
     Route: 048
     Dates: start: 20000328

REACTIONS (11)
  - ASPARTATE AMINOTRANSFERASE INCREASED [None]
  - BLOOD GLUCOSE INCREASED [None]
  - BLOOD HOMOCYSTEINE INCREASED [None]
  - DEEP VEIN THROMBOSIS [None]
  - EOSINOPHIL PERCENTAGE DECREASED [None]
  - GRANULOCYTE COUNT DECREASED [None]
  - HAEMATOCRIT DECREASED [None]
  - HAEMOGLOBIN DECREASED [None]
  - INTERNATIONAL NORMALISED RATIO DECREASED [None]
  - PROTEIN S [None]
  - WHITE BLOOD CELL COUNT DECREASED [None]
